FAERS Safety Report 10545274 (Version 2)
Quarter: 2014Q4

REPORT INFORMATION
  Report Type: Spontaneous
  Country: US (occurrence: US)
  Receive Date: 20141027
  Receipt Date: 20141104
  Transmission Date: 20150529
  Serious: Yes (Other)
  Sender: FDA-Public Use
  Company Number: US-ELI_LILLY_AND_COMPANY-US201410009703

PATIENT
  Sex: Male

DRUGS (1)
  1. HUMULIN N [Suspect]
     Active Substance: INSULIN HUMAN
     Indication: TYPE 2 DIABETES MELLITUS
     Dosage: 18 U, BID
     Route: 065
     Dates: start: 201309

REACTIONS (7)
  - Blood glucose increased [Unknown]
  - Somnolence [Unknown]
  - Depressed level of consciousness [Unknown]
  - Hunger [Unknown]
  - Weight decreased [Unknown]
  - Nasal congestion [Unknown]
  - Blood glucose decreased [Unknown]
